FAERS Safety Report 16254032 (Version 7)
Quarter: 2021Q3

REPORT INFORMATION
  Report Type: Other
  Country: DE (occurrence: DE)
  Receive Date: 20190430
  Receipt Date: 20210806
  Transmission Date: 20211014
  Serious: Yes (Other)
  Sender: FDA-Public Use
  Company Number: DE-ROCHE-2306373

PATIENT
  Age: 53 Year
  Sex: Female
  Weight: 57 kg

DRUGS (3)
  1. NEBIVOLOL. [Concomitant]
     Active Substance: NEBIVOLOL
     Indication: HYPERTENSION
     Route: 048
  2. RAMIPRIL. [Concomitant]
     Active Substance: RAMIPRIL
     Indication: HYPERTENSION
     Route: 048
  3. OCRELIZUMAB. [Suspect]
     Active Substance: OCRELIZUMAB
     Indication: RELAPSING MULTIPLE SCLEROSIS
     Route: 042
     Dates: start: 20180816, end: 20180830

REACTIONS (5)
  - Urinary tract infection [Unknown]
  - Lymphopenia [Unknown]
  - Multiple sclerosis relapse [Unknown]
  - Bronchitis [Unknown]
  - Leukopenia [Unknown]

NARRATIVE: CASE EVENT DATE: 201811
